FAERS Safety Report 12572973 (Version 3)
Quarter: 2017Q1

REPORT INFORMATION
  Report Type: Spontaneous
  Country: FR (occurrence: FR)
  Receive Date: 20160720
  Receipt Date: 20170331
  Transmission Date: 20170428
  Serious: Yes (Hospitalization)
  Sender: FDA-Public Use
  Company Number: FR-ROCHE-1797508

PATIENT
  Age: 42 Year
  Sex: Male

DRUGS (9)
  1. ESPERAL [Suspect]
     Active Substance: DISULFIRAM
     Indication: ALCOHOLISM
     Route: 048
     Dates: start: 201601
  2. VALIUM [Suspect]
     Active Substance: DIAZEPAM
     Indication: ANXIETY
     Route: 048
     Dates: start: 201601
  3. TERCIAN [Suspect]
     Active Substance: CYAMEMAZINE
     Indication: ALCOHOLISM
     Route: 048
     Dates: start: 20160101
  4. EFFEXOR [Suspect]
     Active Substance: VENLAFAXINE HYDROCHLORIDE
     Indication: DEPRESSION
     Dosage: FOR AT LEAST 2 YEARS
     Route: 048
  5. INORIAL [Suspect]
     Active Substance: BILASTINE
     Indication: ROSACEA
     Route: 048
     Dates: start: 20160407
  6. SELINCRO [Suspect]
     Active Substance: NALMEFENE HYDROCHLORIDE DIHYDRATE
     Indication: ALCOHOLISM
     Route: 048
     Dates: start: 201601
  7. DUPHALAC (FRANCE) [Suspect]
     Active Substance: LACTULOSE
     Indication: CONSTIPATION
     Route: 048
     Dates: start: 201601
  8. TERCIAN [Suspect]
     Active Substance: CYAMEMAZINE
     Dosage: AT BEDTIME
     Route: 048
     Dates: start: 201604
  9. TERCIAN [Suspect]
     Active Substance: CYAMEMAZINE
     Indication: ALCOHOLISM
     Dosage: 40MG/ML; 15 TO 20 ML IN THE EVENING
     Route: 048
     Dates: start: 2014, end: 20160101

REACTIONS (1)
  - Renal infarct [Not Recovered/Not Resolved]

NARRATIVE: CASE EVENT DATE: 20160419
